FAERS Safety Report 6534850-2 (Version None)
Quarter: 2010Q1

REPORT INFORMATION
  Report Type: 
  Country: None (occurrence: None)
  Receive Date: 20100112
  Receipt Date: 20100106
  Transmission Date: 20100710
  Serious: Yes (Death, Other)
  Sender: FDA-Public Use
  Company Number: PHEH2008US06599

PATIENT
  Sex: Male

DRUGS (27)
  1. ZOMETA [Suspect]
     Indication: METASTASES TO BONE
     Dosage: UNK
     Route: 042
     Dates: start: 20070611, end: 20080403
  2. CHEMOTHERAPEUTICS NOS [Concomitant]
  3. RADIATION THERAPY [Concomitant]
  4. COUMADIN [Concomitant]
  5. SORAFENIB [Concomitant]
     Dosage: UNK
     Dates: start: 20070801, end: 20071201
  6. HYDROCODONE [Concomitant]
  7. MORPHINE SULFATE [Concomitant]
  8. DEXAMETHASONE [Concomitant]
  9. ENALAPRIL [Concomitant]
  10. OMEPRAZOLE [Concomitant]
  11. MULTI-VITAMINS [Concomitant]
  12. FERROUS SULFATE TAB [Concomitant]
  13. LACTULOSE [Concomitant]
  14. ALDACTONE [Concomitant]
     Dosage: 50 MG BY MOUTH, TWICE DAILY
  15. DECADRON [Concomitant]
     Dosage: UNK
     Dates: end: 20080701
  16. KEFLEX [Concomitant]
     Dosage: 500 MG 3 TIMES DAILY
     Dates: start: 20080303, end: 20080313
  17. PREDNISONE [Concomitant]
     Dosage: UNK
  18. SUTENT [Concomitant]
     Dosage: UNK
     Dates: start: 20070501, end: 20070801
  19. FUROSEMIDE [Concomitant]
     Dosage: UNK
  20. LEVAQUIN [Concomitant]
     Dosage: UNK
  21. PRILOSEC [Concomitant]
     Dosage: 20 MG, BY MOUTH, DAILY
  22. CEPHALEXIN [Concomitant]
     Dosage: 500 MG, BY MOUTH 3 TIMES DAILY
     Dates: start: 20080713
  23. VANCOMYCIN [Concomitant]
     Dosage: INTRAVENOUS
  24. BACTRIM DS [Concomitant]
     Dosage: 160 MG, 1 TAB, 2 TIMES DAILY
  25. CEFAZOLIN [Concomitant]
     Dosage: UNK
  26. TOPROL-XL [Concomitant]
     Dosage: 25 MG BY MOUTH AT NIGHT
  27. PREVIDENT [Concomitant]

REACTIONS (42)
  - ABDOMINAL NEOPLASM [None]
  - ABDOMINAL PAIN [None]
  - ANXIETY [None]
  - ASCITES [None]
  - BACTERIAL DISEASE CARRIER [None]
  - BLADDER CANCER [None]
  - BONE DISORDER [None]
  - CELLULITIS [None]
  - CEREBRAL ISCHAEMIA [None]
  - COLOSTOMY [None]
  - COMPRESSION FRACTURE [None]
  - DEATH [None]
  - DECREASED INTEREST [None]
  - DEHYDRATION [None]
  - DIZZINESS [None]
  - DYSPNOEA [None]
  - DYSPNOEA EXERTIONAL [None]
  - EPISTAXIS [None]
  - EXCORIATION [None]
  - FALL [None]
  - HAEMORRHAGE [None]
  - HEPATOMEGALY [None]
  - HERPES ZOSTER [None]
  - HYPONATRAEMIA [None]
  - HYPOPHOSPHATAEMIA [None]
  - HYPOTENSION [None]
  - INJURY [None]
  - INTESTINAL ISCHAEMIA [None]
  - INTESTINAL PERFORATION [None]
  - LEUKOPENIA [None]
  - NAUSEA [None]
  - OSTEONECROSIS [None]
  - PAIN [None]
  - PAIN IN EXTREMITY [None]
  - PULMONARY CONGESTION [None]
  - RALES [None]
  - SMALL INTESTINAL OBSTRUCTION [None]
  - SURGERY [None]
  - TUMOUR EMBOLISM [None]
  - VASCULAR CAUTERISATION [None]
  - VOMITING [None]
  - WOUND DEHISCENCE [None]
